FAERS Safety Report 11910897 (Version 1)
Quarter: 2016Q1

REPORT INFORMATION
  Report Type: Spontaneous
  Country: US (occurrence: None)
  Receive Date: 20160111
  Receipt Date: 20160111
  Transmission Date: 20160526
  Serious: No
  Sender: FDA-Public Use
  Company Number: None

PATIENT
  Age: 19 Year
  Sex: Male

DRUGS (1)
  1. LAMOTRIGINE 150 MG TEVA [Suspect]
     Active Substance: LAMOTRIGINE
     Indication: BIPOLAR DISORDER
     Dates: start: 20151010, end: 20151123

REACTIONS (3)
  - Product quality issue [None]
  - Activities of daily living impaired [None]
  - Educational problem [None]

NARRATIVE: CASE EVENT DATE: 20151010
